FAERS Safety Report 4477690-0 (Version None)
Quarter: 2004Q4

REPORT INFORMATION
  Report Type: 
  Country: None (occurrence: None)
  Receive Date: 20041014
  Receipt Date: 20040928
  Transmission Date: 20050328
  Serious: Yes (Hospitalization)
  Sender: FDA-Public Use
  Company Number: S04-NOR-04873-01

PATIENT
  Age: 32 Year
  Sex: Female

DRUGS (4)
  1. CIPRAMIL (CITALOPRAM HYDROBROMIDE) [Suspect]
     Indication: DEPRESSION
     Dosage: 40 MG QD PO
     Route: 048
     Dates: start: 20000927, end: 20020726
  2. PARALGIN FORTE [Concomitant]
  3. LEVONORGESTREL AND ETHINYL ESTRADIOL [Concomitant]
  4. DEPO-PROVERA SUSPENSION/INJ [Concomitant]

REACTIONS (3)
  - INTRACRANIAL ANEURYSM [None]
  - SUBARACHNOID HAEMORRHAGE [None]
  - SYNCOPE [None]
